FAERS Safety Report 21398652 (Version 1)
Quarter: 2022Q3

REPORT INFORMATION
  Report Type: Report from Study
  Country: US (occurrence: US)
  Receive Date: 20220930
  Receipt Date: 20220930
  Transmission Date: 20221026
  Serious: Yes (Other)
  Sender: FDA-Public Use
  Company Number: US-ABBVIE-4129967

PATIENT

DRUGS (4)
  1. HUMIRA [Suspect]
     Active Substance: ADALIMUMAB
     Indication: Psoriatic arthropathy
     Route: 058
  2. XELJANZ [Concomitant]
     Active Substance: TOFACITINIB CITRATE
     Indication: Product used for unknown indication
     Dates: start: 201911
  3. METHOTREXATE [Concomitant]
     Active Substance: METHOTREXATE
     Indication: Inflammatory bowel disease
  4. OTEZLA [Suspect]
     Active Substance: APREMILAST
     Indication: Product used for unknown indication
     Route: 065

REACTIONS (3)
  - Multiple sclerosis [Unknown]
  - Adverse drug reaction [Unknown]
  - Weight decreased [Unknown]

NARRATIVE: CASE EVENT DATE: 20190101
